FAERS Safety Report 17108574 (Version 2)
Quarter: 2019Q4

REPORT INFORMATION
  Report Type: Spontaneous
  Country: JP (occurrence: JP)
  Receive Date: 20191203
  Receipt Date: 20191218
  Transmission Date: 20200122
  Serious: Yes (Hospitalization, Other)
  Sender: FDA-Public Use
  Company Number: JP-PFIZER INC-2019519299

PATIENT
  Age: 80 Year
  Sex: Male

DRUGS (3)
  1. CILOSTAZOL. [Concomitant]
     Active Substance: CILOSTAZOL
     Dosage: UNK
  2. AMIODARONE HCL [Suspect]
     Active Substance: AMIODARONE HYDROCHLORIDE
     Indication: ARRHYTHMIA
     Dosage: 400 MG, 1X/DAY
     Route: 048
  3. EDOXABAN TOSILATE [Concomitant]
     Active Substance: EDOXABAN TOSYLATE
     Dosage: UNK

REACTIONS (5)
  - Cough [Recovering/Resolving]
  - Pleural effusion [Recovering/Resolving]
  - Respiration abnormal [Recovering/Resolving]
  - Pulmonary alveolar haemorrhage [Recovering/Resolving]
  - Haemoptysis [Recovering/Resolving]
